FAERS Safety Report 20253284 (Version 2)
Quarter: 2021Q4

REPORT INFORMATION
  Report Type: Report from Study
  Country: BE (occurrence: BE)
  Receive Date: 20211230
  Receipt Date: 20211231
  Transmission Date: 20220303
  Serious: No
  Sender: FDA-Public Use
  Company Number: BE-ABBVIE-21K-013-4214893-00

PATIENT
  Sex: Male
  Weight: 60 kg

DRUGS (18)
  1. CARBIDOPA\LEVODOPA [Suspect]
     Active Substance: CARBIDOPA\LEVODOPA
     Indication: Parkinson^s disease
     Route: 050
     Dates: start: 20210119, end: 2021
  2. CARBIDOPA\LEVODOPA [Suspect]
     Active Substance: CARBIDOPA\LEVODOPA
     Dosage: MD: 4.5 ML, CD: 2.2 ML/HR;DURING 16 HOURS, ED: 2.7 ML
     Route: 050
     Dates: start: 20210511, end: 20210630
  3. CARBIDOPA\LEVODOPA [Suspect]
     Active Substance: CARBIDOPA\LEVODOPA
     Dosage: MD: 4.5 ML, CD: 2.4 ML/HR;DURING 16 HOURS, ED: 3.0 ML
     Route: 050
     Dates: start: 20210630, end: 20210804
  4. CARBIDOPA\LEVODOPA [Suspect]
     Active Substance: CARBIDOPA\LEVODOPA
     Dosage: MD: 4.5 ML, CD: 2.2 ML/HR;DURING 16 HOURS, ED: 2.0 ML
     Route: 050
     Dates: start: 20210804, end: 20210830
  5. CARBIDOPA\LEVODOPA [Suspect]
     Active Substance: CARBIDOPA\LEVODOPA
     Dosage: MD: 4.2 ML, CD: 2.2 ML/HR;DURING 16 HOURS, ED: 3.0 ML
     Route: 050
     Dates: start: 20210830, end: 202112
  6. CARBIDOPA\LEVODOPA [Suspect]
     Active Substance: CARBIDOPA\LEVODOPA
     Dosage: MD: 4.2 ML, CD: 2.2 ML/HR DURING 16 HOURS, ED: 3.0 ML
     Route: 050
     Dates: start: 202112, end: 202112
  7. CARBIDOPA\LEVODOPA [Suspect]
     Active Substance: CARBIDOPA\LEVODOPA
     Dosage: MD: 4.2 ML, CD: 2.2 ML/HR DURING 16 HOURS, ED: 3.0 ML
     Route: 050
     Dates: start: 202112
  8. ASPIRIN [Concomitant]
     Active Substance: ASPIRIN
     Indication: Product used for unknown indication
  9. TRAMADOL HYDROCHLORIDE [Concomitant]
     Active Substance: TRAMADOL HYDROCHLORIDE
     Indication: Product used for unknown indication
     Dosage: AT 10 PM?RETARD
  10. PANTOMED [Concomitant]
     Indication: Product used for unknown indication
     Dosage: AT 7 AM
  11. RIVOTRIL [Concomitant]
     Active Substance: CLONAZEPAM
     Indication: Product used for unknown indication
     Dosage: AT 10 PM
  12. PIRACETAM [Concomitant]
     Active Substance: PIRACETAM
     Indication: Product used for unknown indication
     Dosage: AT 8 AM
  13. XADAGO [Concomitant]
     Active Substance: SAFINAMIDE MESYLATE
     Indication: Product used for unknown indication
     Dosage: AT 8 AM
  14. STALEVO [Concomitant]
     Active Substance: CARBIDOPA\ENTACAPONE\LEVODOPA
     Indication: Product used for unknown indication
     Dosage: AT 10:00, 12:00, 17:00 AND 22:00 HOURS
  15. STALEVO [Concomitant]
     Active Substance: CARBIDOPA\ENTACAPONE\LEVODOPA
     Dosage: AT 7 AM
  16. BENSERAZIDE\LEVODOPA [Concomitant]
     Active Substance: BENSERAZIDE\LEVODOPA
     Indication: Product used for unknown indication
     Dosage: 0.25 TABLET?AT 12:00 HOURS
  17. BENSERAZIDE\LEVODOPA [Concomitant]
     Active Substance: BENSERAZIDE\LEVODOPA
     Dosage: 0.5 TABLET?AT 20:00 HOURS
  18. APOMORPHINE HYDROCHLORIDE [Concomitant]
     Active Substance: APOMORPHINE HYDROCHLORIDE
     Indication: Product used for unknown indication
     Dosage: APO-GO-PEN

REACTIONS (2)
  - Off label use [Recovered/Resolved]
  - Device occlusion [Recovered/Resolved]

NARRATIVE: CASE EVENT DATE: 20210101
